FAERS Safety Report 8250439-1 (Version None)
Quarter: 2012Q2

REPORT INFORMATION
  Report Type: 
  Country: None (occurrence: None)
  Receive Date: 20120402
  Receipt Date: 20120323
  Transmission Date: 20120825
  Serious: Yes (Hospitalization)
  Sender: FDA-Public Use
  Company Number: DE-ROCHE-1052935

PATIENT
  Age: 78 Year
  Sex: Male
  Weight: 99.2 kg

DRUGS (8)
  1. VEMURAFENIB [Suspect]
     Indication: MALIGNANT MELANOMA
     Route: 048
     Dates: start: 20120307, end: 20120322
  2. SPIROBETA [Concomitant]
     Dates: start: 20101101
  3. SIMVASTATIN [Concomitant]
     Dates: start: 20100901
  4. ASPIRIN [Concomitant]
     Dates: start: 20100901
  5. ALLOPURINOL [Concomitant]
     Dates: start: 20111001
  6. METOPROLOL SUCCINATE [Concomitant]
     Dates: start: 20100901
  7. RAMIPRIL [Concomitant]
     Dates: start: 20091101
  8. TORSEMIDE [Concomitant]
     Dates: start: 20091101

REACTIONS (1)
  - MUSCULAR WEAKNESS [None]
